FAERS Safety Report 10152827 (Version 2)
Quarter: 2014Q2

REPORT INFORMATION
  Report Type: Report from Study
  Country: JP (occurrence: JP)
  Receive Date: 20140505
  Receipt Date: 20140516
  Transmission Date: 20141212
  Serious: Yes (Hospitalization)
  Sender: FDA-Public Use
  Company Number: JP-EISAI INC-E2020-13952-CLI-JP

PATIENT
  Age: 92 Year
  Sex: Female
  Weight: 45 kg

DRUGS (15)
  1. ARICEPT [Suspect]
     Indication: DEMENTIA ALZHEIMER^S TYPE
     Route: 048
     Dates: start: 20140213, end: 20140214
  2. ARICEPT [Suspect]
     Route: 048
     Dates: start: 20140217, end: 20140228
  3. ARICEPT [Suspect]
     Route: 048
     Dates: start: 20140301, end: 20140421
  4. ARICEPT [Suspect]
     Route: 048
     Dates: start: 20140426
  5. LOXOPROFEN [Concomitant]
     Route: 048
     Dates: start: 20140106
  6. MUCOSTA [Concomitant]
     Route: 048
     Dates: start: 20140106
  7. MAGLAX [Concomitant]
     Route: 048
     Dates: start: 20140314
  8. ALFACALCIDOL [Concomitant]
     Dosage: 1 UG
     Dates: start: 20140411
  9. LANSOPRAZOLE [Concomitant]
     Dates: start: 20080305
  10. ITOROL [Concomitant]
     Route: 048
     Dates: start: 20131010
  11. BAYASPIRIN [Concomitant]
     Route: 048
     Dates: start: 20130301
  12. ZOLPIDEM TARTRATE [Concomitant]
     Route: 048
     Dates: start: 20130308
  13. RYTHMODAN R [Concomitant]
     Route: 048
     Dates: start: 20131017
  14. TOUCHRON [Concomitant]
     Dates: start: 20140331
  15. SENNOSIDE [Concomitant]
     Route: 048
     Dates: start: 20140310

REACTIONS (1)
  - Pneumonia aspiration [Not Recovered/Not Resolved]
